FAERS Safety Report 14480465 (Version 1)
Quarter: 2018Q1

REPORT INFORMATION
  Report Type: Spontaneous
  Country: ZA (occurrence: ZA)
  Receive Date: 20180202
  Receipt Date: 20180202
  Transmission Date: 20180509
  Serious: Yes (Hospitalization)
  Sender: FDA-Public Use
  Company Number: ZA-SEPTODONT-201804472

PATIENT
  Age: 5 Year
  Sex: Male

DRUGS (1)
  1. SEPTANEST 1/100 000 (ARTICAINE HYDROCHLORIDE\EPINEPHRINE BITARTRATE) [Suspect]
     Active Substance: ARTICAINE HYDROCHLORIDE\EPINEPHRINE BITARTRATE
     Indication: LOCAL ANAESTHESIA
     Dosage: 1 CARTRIDGE BY BLOCK AND 1/2 CARTRIGE BY BUCCAL INFILTRATION
     Route: 004
     Dates: start: 20180118, end: 20180118

REACTIONS (5)
  - Feeling abnormal [Recovered/Resolved]
  - Cyanosis [Recovered/Resolved]
  - Feeling cold [Recovered/Resolved]
  - Eye movement disorder [Recovered/Resolved]
  - Vomiting [Recovered/Resolved]

NARRATIVE: CASE EVENT DATE: 20180118
